FAERS Safety Report 7443687-1 (Version None)
Quarter: 2011Q2

REPORT INFORMATION
  Report Type: 
  Country: None (occurrence: None)
  Receive Date: 20110428
  Receipt Date: 20110427
  Transmission Date: 20111010
  Serious: Yes (Life-Threatening, Hospitalization, Other)
  Sender: FDA-Public Use
  Company Number: FR-PFIZER INC-2011013673

PATIENT
  Age: 80 Year
  Sex: Male

DRUGS (8)
  1. CORDARONE [Concomitant]
     Indication: ATRIAL FIBRILLATION
     Dosage: 200 MG, 1X/DAY
     Route: 048
     Dates: start: 20070101
  2. CORDARONE [Concomitant]
     Dosage: UNK
     Dates: start: 20101208
  3. PREVISCAN [Concomitant]
     Indication: ARRHYTHMIA PROPHYLAXIS
     Dosage: 20 MG, 1X/DAY
     Route: 048
     Dates: start: 20070101
  4. SERETIDE [Concomitant]
     Dosage: 2 DF, 2X/DAY
     Route: 055
  5. VENTOLIN [Concomitant]
     Dosage: UNK, AS NEEDED
     Route: 055
  6. TAHOR [Suspect]
     Dosage: 20 MG, 1X/DAY
     Route: 048
  7. PREVISCAN [Concomitant]
     Dosage: UNK
     Route: 048
     Dates: start: 20101203
  8. VAXIGRIP [Suspect]
     Dosage: 1 DF, SINGLE
     Route: 030
     Dates: start: 20100101, end: 20100101

REACTIONS (6)
  - GINGIVAL BLEEDING [None]
  - EPISTAXIS [None]
  - ANAEMIA [None]
  - THROMBOCYTOPENIA [None]
  - PURPURA [None]
  - EPSTEIN-BARR VIRUS TEST POSITIVE [None]
